FAERS Safety Report 20317490 (Version 1)
Quarter: 2022Q1

REPORT INFORMATION
  Report Type: Report from Study
  Country: US (occurrence: US)
  Receive Date: 20220110
  Receipt Date: 20220110
  Transmission Date: 20220424
  Serious: Yes (Hospitalization, Other)
  Sender: FDA-Public Use
  Company Number: US-GILEAD-2022-0564443

PATIENT
  Age: 36 Year
  Sex: Female

DRUGS (1)
  1. AZTREONAM LYSINE [Suspect]
     Active Substance: AZTREONAM LYSINE
     Indication: Cystic fibrosis
     Dosage: 75 MG, TID, 28 DAYS ON 28 DAYS OFF
     Route: 065
     Dates: start: 201806

REACTIONS (9)
  - Abdominal pain upper [Not Recovered/Not Resolved]
  - Haematemesis [Recovering/Resolving]
  - Gastrooesophageal reflux disease [Recovering/Resolving]
  - Inflammation [Recovering/Resolving]
  - Ovarian cyst [Recovering/Resolving]
  - Oropharyngeal pain [Not Recovered/Not Resolved]
  - Throat irritation [Recovering/Resolving]
  - Vomiting [Recovering/Resolving]
  - Dyspnoea [Recovering/Resolving]

NARRATIVE: CASE EVENT DATE: 20211231
